FAERS Safety Report 5031318-X (Version None)
Quarter: 2006Q2

REPORT INFORMATION
  Report Type: 
  Country: None (occurrence: None)
  Receive Date: 20060616
  Receipt Date: 20060602
  Transmission Date: 20061013
  Serious: Yes (Other)
  Sender: FDA-Public Use
  Company Number: FR-2006-013905

PATIENT
  Age: 72 Year
  Sex: Male

DRUGS (1)
  1. FLUDARA [Suspect]
     Indication: WALDENSTROM'S MACROGLOBULINAEMIA
     Dosage: INTRAVENOUS
     Route: 042
     Dates: end: 19971201

REACTIONS (6)
  - AGNOSIA [None]
  - COGNITIVE DISORDER [None]
  - DEMENTIA ALZHEIMER'S TYPE [None]
  - ENCEPHALOPATHY [None]
  - HYPOKINESIA [None]
  - VISUAL DISTURBANCE [None]
